FAERS Safety Report 18626528 (Version 1)
Quarter: 2020Q4

REPORT INFORMATION
  Report Type: Report from Study
  Country: None (occurrence: US)
  Receive Date: 20201216
  Receipt Date: 20201216
  Transmission Date: 20210114
  Serious: Yes (Other)
  Sender: FDA-Public Use
  Company Number: US-ABBVIE-20K-163-3605463-00

PATIENT
  Sex: Male

DRUGS (1)
  1. HUMIRA [Suspect]
     Active Substance: ADALIMUMAB
     Indication: RHEUMATOID ARTHRITIS
     Dosage: CF
     Route: 058

REACTIONS (7)
  - Parkinson^s disease [Unknown]
  - Cataract [Unknown]
  - Deep brain stimulation [Unknown]
  - Lung neoplasm malignant [Unknown]
  - Carpal tunnel syndrome [Unknown]
  - Knee arthroplasty [Unknown]
  - Cardiac pacemaker insertion [Unknown]
